FAERS Safety Report 24129738 (Version 4)
Quarter: 2024Q4

REPORT INFORMATION
  Report Type: Spontaneous
  Country: JP (occurrence: JP)
  Receive Date: 20240724
  Receipt Date: 20241003
  Transmission Date: 20250115
  Serious: Yes (Hospitalization, Other)
  Sender: MERCK
  Company Number: JP-MSD-2407JPN003405J

PATIENT
  Age: 75 Year
  Sex: Male

DRUGS (3)
  1. KEYTRUDA [Suspect]
     Active Substance: PEMBROLIZUMAB
     Indication: Hypopharyngeal cancer recurrent
     Dosage: UNK
     Route: 041
     Dates: start: 202301
  2. FLUOROURACIL [Concomitant]
     Active Substance: FLUOROURACIL
     Indication: Hypopharyngeal cancer recurrent
     Dosage: UNK
     Route: 065
     Dates: start: 202301, end: 202305
  3. CISPLATIN [Concomitant]
     Active Substance: CISPLATIN
     Indication: Hypopharyngeal cancer recurrent
     Dosage: UNK
     Route: 065
     Dates: start: 202301, end: 202305

REACTIONS (5)
  - Hypothalamo-pituitary disorder [Recovering/Resolving]
  - Adrenocorticotropic hormone deficiency [Recovering/Resolving]
  - Secondary adrenocortical insufficiency [Recovering/Resolving]
  - Empty sella syndrome [Unknown]
  - Thyroiditis [Recovering/Resolving]

NARRATIVE: CASE EVENT DATE: 20230101
